FAERS Safety Report 9032627 (Version 2)
Quarter: 2013Q1

REPORT INFORMATION
  Report Type: Spontaneous
  Country: BR (occurrence: BR)
  Receive Date: 20130122
  Receipt Date: 20130329
  Transmission Date: 20140127
  Serious: Yes (Death, Hospitalization, Other)
  Sender: FDA-Public Use
  Company Number: PHHY2013BR005476

PATIENT
  Age: 80 Year
  Sex: Male

DRUGS (1)
  1. DIOVAN HCT [Suspect]
     Indication: BLOOD PRESSURE ABNORMAL
     Dosage: 2 DF (160 MG VALS/ 12.5 MG HCT), BID ONE IN MORNING AND ONE AT NIGHT
     Route: 048

REACTIONS (5)
  - Organ failure [Fatal]
  - Femur fracture [Recovering/Resolving]
  - Fall [Recovering/Resolving]
  - Renal disorder [Not Recovered/Not Resolved]
  - Dyspnoea [Not Recovered/Not Resolved]
